FAERS Safety Report 9409637 (Version 1)
Quarter: 2013Q3

REPORT INFORMATION
  Report Type: Spontaneous
  Country: US (occurrence: US)
  Receive Date: 20130716
  Receipt Date: 20130716
  Transmission Date: 20140515
  Serious: Yes (Hospitalization)
  Sender: FDA-Public Use
  Company Number: 1715955

PATIENT
  Age: 83 Year
  Sex: Female
  Weight: 46.8 kg

DRUGS (2)
  1. LIDOCAINE 1% [Suspect]
     Indication: OSTEOARTHRITIS
     Route: 014
     Dates: start: 20130416, end: 20130416
  2. CORTICOSTEROID NOS [Suspect]
     Indication: OSTEOARTHRITIS
     Route: 014
     Dates: start: 20130416, end: 20130416

REACTIONS (4)
  - Staphylococcal infection [None]
  - Arthritis bacterial [None]
  - Arthralgia [None]
  - Post procedural infection [None]
